FAERS Safety Report 24780265 (Version 1)
Quarter: 2024Q4

REPORT INFORMATION
  Report Type: Report from Study
  Country: US (occurrence: US)
  Receive Date: 20241227
  Receipt Date: 20241227
  Transmission Date: 20250115
  Serious: Yes (Other)
  Sender: ALEXION PHARMACEUTICALS
  Company Number: US-AstraZeneca-CH-00772557A

PATIENT

DRUGS (4)
  1. CALQUENCE [Suspect]
     Active Substance: ACALABRUTINIB
     Indication: Lung carcinoma cell type unspecified recurrent
  2. CALQUENCE [Suspect]
     Active Substance: ACALABRUTINIB
     Route: 048
  3. CALQUENCE [Suspect]
     Active Substance: ACALABRUTINIB
  4. CALQUENCE [Suspect]
     Active Substance: ACALABRUTINIB
     Route: 048

REACTIONS (2)
  - Dyspnoea [Unknown]
  - Pulmonary oedema [Unknown]
